FAERS Safety Report 5772142-X (Version None)
Quarter: 2008Q2

REPORT INFORMATION
  Report Type: 
  Country: None (occurrence: None)
  Receive Date: 20080613
  Receipt Date: 20080603
  Transmission Date: 20081010
  Serious: Yes (Other)
  Sender: FDA-Public Use
  Company Number: US-ROCHE-558129

PATIENT
  Age: 60 Year
  Sex: Female

DRUGS (2)
  1. BONIVA [Suspect]
     Indication: OSTEOPOROSIS
     Dosage: FORM: PILL
     Route: 048
     Dates: start: 20070101
  2. BONIVA [Suspect]
     Route: 048
     Dates: start: 20080501

REACTIONS (1)
  - REFLUX GASTRITIS [None]
